FAERS Safety Report 8275728-6 (Version None)
Quarter: 2012Q2

REPORT INFORMATION
  Report Type: 
  Country: None (occurrence: None)
  Receive Date: 20120410
  Receipt Date: 20120410
  Transmission Date: 20120825
  Serious: Yes (Hospitalization)
  Sender: FDA-Public Use
  Company Number: None

PATIENT
  Sex: Female
  Weight: 54.5 kg

DRUGS (1)
  1. BUPROPION HCL [Suspect]
     Indication: MAJOR DEPRESSION
     Dosage: 37.5 MG THURSDAY, 75 MG FRIDAY ORAL
     Route: 048
     Dates: start: 20120322, end: 20120323

REACTIONS (3)
  - OEDEMA PERIPHERAL [None]
  - JOINT SWELLING [None]
  - PAIN [None]
